FAERS Safety Report 19737760 (Version 1)
Quarter: 2021Q3

REPORT INFORMATION
  Report Type: Spontaneous
  Country: US (occurrence: US)
  Receive Date: 20210823
  Receipt Date: 20210823
  Transmission Date: 20211014
  Serious: No
  Sender: FDA-Public Use
  Company Number: US-SA-2021SA274940

PATIENT
  Age: 78 Year
  Sex: Female

DRUGS (2)
  1. ZYRTEC [Concomitant]
     Active Substance: CETIRIZINE HYDROCHLORIDE
  2. ALLEGRA ALLERGY [Suspect]
     Active Substance: FEXOFENADINE HYDROCHLORIDE
     Indication: HYPERSENSITIVITY
     Dosage: 1 DF, QD, IN THE MORNING DRUG TREATMENT DURATION: A COUPLE OF MONTHS

REACTIONS (3)
  - Rhinorrhoea [Unknown]
  - Drug ineffective [Unknown]
  - Sputum discoloured [Unknown]
